FAERS Safety Report 5380950-2 (Version None)
Quarter: 2007Q3

REPORT INFORMATION
  Report Type: 
  Country: None (occurrence: None)
  Receive Date: 20070702
  Receipt Date: 20060703
  Transmission Date: 20080115
  Serious: Yes (Other)
  Sender: FDA-Public Use
  Company Number: SPV1-2006-00175

PATIENT
  Age: 44 Year
  Sex: Female

DRUGS (1)
  1. PENTASA [Suspect]
     Indication: COLITIS
     Dosage: 3 G DAILY, ORAL
     Route: 048
     Dates: start: 20060502, end: 20060517

REACTIONS (2)
  - ABDOMINAL PAIN [None]
  - DIARRHOEA [None]
